FAERS Safety Report 17611154 (Version 1)
Quarter: 2020Q2

REPORT INFORMATION
  Report Type: Report from Study
  Country: US (occurrence: US)
  Receive Date: 20200401
  Receipt Date: 20200401
  Transmission Date: 20200713
  Serious: Yes (Other)
  Sender: FDA-Public Use
  Company Number: US-GILEAD-2020-0456774

PATIENT
  Age: 86 Year
  Sex: Female

DRUGS (15)
  1. IDELALISIB [Suspect]
     Active Substance: IDELALISIB
     Indication: CHRONIC LYMPHOCYTIC LEUKAEMIA
     Dosage: 1 DOSAGE FORM, QOD
     Route: 048
     Dates: start: 20170430
  2. METHENAMINE [Concomitant]
     Active Substance: METHENAMINE
  3. CALCIUM CITRATE [Concomitant]
     Active Substance: CALCIUM CITRATE
  4. CALCIUM [Concomitant]
     Active Substance: CALCIUM
  5. ALLOPURINOL. [Concomitant]
     Active Substance: ALLOPURINOL
  6. FOLIC ACID. [Concomitant]
     Active Substance: FOLIC ACID
  7. CYMBALTA [Concomitant]
     Active Substance: DULOXETINE HYDROCHLORIDE
  8. OMEPRAZOLE. [Concomitant]
     Active Substance: OMEPRAZOLE
  9. ACYCLOVIR [ACICLOVIR] [Concomitant]
     Active Substance: ACYCLOVIR
  10. COLESTIPOL [Concomitant]
     Active Substance: COLESTIPOL
  11. FISH OIL [Concomitant]
     Active Substance: FISH OIL
  12. PROPRANOLOL HYDROCHLORIDE. [Concomitant]
     Active Substance: PROPRANOLOL HYDROCHLORIDE
  13. ALPRAZOLAM. [Concomitant]
     Active Substance: ALPRAZOLAM
  14. PROCHLORPERAZINE. [Concomitant]
     Active Substance: PROCHLORPERAZINE
  15. ROSUVASTIN [Concomitant]
     Active Substance: ROSUVASTATIN

REACTIONS (4)
  - Rectal prolapse [Recovered/Resolved]
  - Bladder prolapse [Recovered/Resolved]
  - Cystitis [Recovered/Resolved]
  - Urinary retention [Recovered/Resolved]
